FAERS Safety Report 6720122-X (Version None)
Quarter: 2010Q2

REPORT INFORMATION
  Report Type: 
  Country: None (occurrence: None)
  Receive Date: 20100507
  Receipt Date: 20100421
  Transmission Date: 20101027
  Serious: Yes (Hospitalization)
  Sender: FDA-Public Use
  Company Number: 1-22338096

PATIENT
  Age: 48 Year
  Sex: Female

DRUGS (3)
  1. PHENYTOIN [Suspect]
     Indication: EPILEPSY
     Dosage: 400 MG, DAILY, ORAL
     Route: 048
  2. THYROXINE, STRENGTH AND MANUFACTURER UNK [Suspect]
     Indication: HYPOTHYROIDISM
     Dosage: 200 MCG, ONCE DAILY, ORAL
     Route: 048
  3. CARBAMAZEPINE [Concomitant]

REACTIONS (8)
  - CEREBELLAR SYNDROME [None]
  - CONDITION AGGRAVATED [None]
  - DIPLOPIA [None]
  - DRUG INTERACTION [None]
  - FALL [None]
  - HYPOTHYROIDISM [None]
  - MEAN CELL VOLUME INCREASED [None]
  - THERAPEUTIC AGENT TOXICITY [None]
